FAERS Safety Report 10859717 (Version 1)
Quarter: 2015Q1

REPORT INFORMATION
  Report Type: Spontaneous
  Country: US (occurrence: US)
  Receive Date: 20150223
  Receipt Date: 20150223
  Transmission Date: 20150721
  Serious: Yes (Hospitalization)
  Sender: FDA-Public Use
  Company Number: US-CELGENEUS-163-21880-14044201

PATIENT
  Age: 91 Year
  Sex: Male
  Weight: 73.55 kg

DRUGS (2)
  1. REVLIMID [Suspect]
     Active Substance: LENALIDOMIDE
     Indication: PLASMA CELL MYELOMA
     Route: 048
     Dates: start: 20140127
  2. REVLIMID [Suspect]
     Active Substance: LENALIDOMIDE
     Route: 048
     Dates: start: 201403, end: 20140413

REACTIONS (6)
  - Cardiac failure congestive [Unknown]
  - Dermatitis exfoliative [Not Recovered/Not Resolved]
  - Pneumonia [Unknown]
  - Swelling [Recovered/Resolved]
  - Urinary tract infection [Unknown]
  - Full blood count decreased [Recovering/Resolving]

NARRATIVE: CASE EVENT DATE: 201403
